FAERS Safety Report 22316539 (Version 1)
Quarter: 2023Q2

REPORT INFORMATION
  Report Type: Other
  Country: IT (occurrence: None)
  Receive Date: 20230513
  Receipt Date: 20230513
  Transmission Date: 20230721
  Serious: No
  Sender: FDA-Public Use
  Company Number: IT-ROCHE-3347250

PATIENT
  Age: 32 Year
  Sex: Male
  Weight: 87 kg

DRUGS (3)
  1. OCRELIZUMAB [Suspect]
     Active Substance: OCRELIZUMAB
     Indication: Relapsing-remitting multiple sclerosis
     Dosage: SUBSEQUENT DOSE RECEIVED ON 10/FEB/2021
     Route: 042
     Dates: start: 20210127
  2. OCRELIZUMAB [Suspect]
     Active Substance: OCRELIZUMAB
     Dosage: SUBSEQUENT DOSE RECEIVED ON 02/MAR/2022,16/SEP/2022, 14/APR/2023
     Route: 042
     Dates: start: 20210830, end: 20210830
  3. INCOVES [Concomitant]
     Route: 048
     Dates: start: 20210801

REACTIONS (1)
  - COVID-19 [Recovered/Resolved]

NARRATIVE: CASE EVENT DATE: 20221026
